FAERS Safety Report 5444694-0 (Version None)
Quarter: 2007Q3

REPORT INFORMATION
  Report Type: 
  Country: None (occurrence: None)
  Receive Date: 20070906
  Receipt Date: 20070216
  Transmission Date: 20080115
  Serious: No
  Sender: FDA-Public Use
  Company Number: A0637991A

PATIENT
  Age: 67 Year
  Sex: Female

DRUGS (4)
  1. REQUIP [Suspect]
     Indication: RESTLESS LEGS SYNDROME
     Dosage: .75MG AT NIGHT
     Route: 048
     Dates: start: 20061201
  2. KLONOPIN [Concomitant]
  3. PAXIL [Concomitant]
  4. BACTRIM [Concomitant]

REACTIONS (5)
  - DRUG INEFFECTIVE [None]
  - DYSPNOEA [None]
  - FEELING OF BODY TEMPERATURE CHANGE [None]
  - RESPIRATORY DISORDER [None]
  - RESTLESS LEGS SYNDROME [None]
